FAERS Safety Report 10504227 (Version 2)
Quarter: 2014Q4

REPORT INFORMATION
  Report Type: Spontaneous
  Country: US (occurrence: US)
  Receive Date: 20141008
  Receipt Date: 20141008
  Transmission Date: 20150528
  Serious: No
  Sender: FDA-Public Use
  Company Number: US-BEH-2014043047

PATIENT
  Sex: Female
  Weight: 75 kg

DRUGS (53)
  1. BUTORPHANOL [Concomitant]
     Active Substance: BUTORPHANOL
     Dosage: 10 MG/ML
  2. TRAMADOL HCL [Concomitant]
     Active Substance: TRAMADOL HYDROCHLORIDE
  3. MORPHINE [Concomitant]
     Active Substance: MORPHINE
     Dosage: 2 MG/ML
  4. MECLIZINE [Concomitant]
     Active Substance: MECLIZINE\MECLIZINE HYDROCHLORIDE
  5. XYLOCAINE [Concomitant]
     Active Substance: LIDOCAINE HYDROCHLORIDE
  6. EPIPEN [Concomitant]
     Active Substance: EPINEPHRINE
  7. CRANBERRY. [Concomitant]
     Active Substance: CRANBERRY
  8. LYRICA [Concomitant]
     Active Substance: PREGABALIN
  9. PROCHLORPERAZINE. [Concomitant]
     Active Substance: PROCHLORPERAZINE
  10. NORCO [Concomitant]
     Active Substance: ACETAMINOPHEN\HYDROCODONE BITARTRATE
     Dosage: 5-325
  11. DRONABINOL. [Concomitant]
     Active Substance: DRONABINOL
  12. FROVA [Concomitant]
     Active Substance: FROVATRIPTAN SUCCINATE
  13. CEFTIN [Concomitant]
     Active Substance: CEFUROXIME AXETIL
  14. ALBUTEROL. [Concomitant]
     Active Substance: ALBUTEROL
  15. RELPAX [Concomitant]
     Active Substance: ELETRIPTAN HYDROBROMIDE
  16. CITALOPRAM [Concomitant]
     Active Substance: CITALOPRAM HYDROBROMIDE
  17. NAMENDA [Concomitant]
     Active Substance: MEMANTINE HYDROCHLORIDE
  18. CHLORPROMAZINE [Concomitant]
     Active Substance: CHLORPROMAZINE
  19. ACETAMINOPHEN. [Concomitant]
     Active Substance: ACETAMINOPHEN
  20. DIPHENHYDRAMINE [Concomitant]
     Active Substance: DIPHENHYDRAMINE
  21. HEPARIN [Concomitant]
     Active Substance: HEPARIN SODIUM
     Dosage: 100 UNITS/ML
  22. TOPIRAMATE. [Concomitant]
     Active Substance: TOPIRAMATE
  23. PRIVIGEN [Suspect]
     Active Substance: HUMAN IMMUNOGLOBULIN G
     Route: 042
  24. RANITIDINE [Concomitant]
     Active Substance: RANITIDINE\RANITIDINE HYDROCHLORIDE
  25. DHEA ACETATE [Concomitant]
  26. CYANOCOBALAMIN. [Concomitant]
     Active Substance: CYANOCOBALAMIN
     Dosage: 1000 MCG/ML
  27. EFFEXOR XR [Concomitant]
     Active Substance: VENLAFAXINE HYDROCHLORIDE
  28. NEURONTIN [Concomitant]
     Active Substance: GABAPENTIN
  29. MARINOL [Concomitant]
     Active Substance: DRONABINOL
  30. ZEGERID [Concomitant]
     Active Substance: OMEPRAZOLE\SODIUM BICARBONATE
     Dosage: 20-1100 MG
  31. SONATA [Concomitant]
     Active Substance: ZALEPLON
  32. MELATONIN [Concomitant]
     Active Substance: MELATONIN
  33. ATIVAN [Concomitant]
     Active Substance: LORAZEPAM
  34. PROMETHAZINE [Concomitant]
     Active Substance: PROMETHAZINE\PROMETHAZINE HYDROCHLORIDE
  35. PRIVIGEN [Suspect]
     Active Substance: HUMAN IMMUNOGLOBULIN G
     Indication: MULTIPLE SCLEROSIS
     Route: 042
  36. PRIVIGEN [Suspect]
     Active Substance: HUMAN IMMUNOGLOBULIN G
     Indication: IMMUNODEFICIENCY COMMON VARIABLE
     Route: 042
  37. NEXIUM DR [Concomitant]
  38. TEGRETOL [Concomitant]
     Active Substance: CARBAMAZEPINE
  39. ONDANSETRON [Concomitant]
     Active Substance: ONDANSETRON
  40. IBUPROFEN. [Concomitant]
     Active Substance: IBUPROFEN
  41. NORMAL SALINE [Concomitant]
     Active Substance: SODIUM CHLORIDE
  42. MAALOX MAX [Concomitant]
     Active Substance: ALUMINUM HYDROXIDE\DIMETHICONE\MAGNESIUM HYDROXIDE
  43. MIRALAX [Concomitant]
     Active Substance: POLYETHYLENE GLYCOL 3350
  44. ALL OTHER THERAPEUTIC PRODUCTS [Concomitant]
     Active Substance: UNSPECIFIED INGREDIENT
  45. ARICEPT [Concomitant]
     Active Substance: DONEPEZIL HYDROCHLORIDE
  46. ZITHROMAX [Concomitant]
     Active Substance: AZITHROMYCIN DIHYDRATE
  47. SINGULAIR [Concomitant]
     Active Substance: MONTELUKAST SODIUM
  48. EFFEXOR XR [Concomitant]
     Active Substance: VENLAFAXINE HYDROCHLORIDE
  49. NYSTATIN. [Concomitant]
     Active Substance: NYSTATIN
     Dosage: 100,000 UNITS/ML
  50. AMITRIPTYLINE HCL [Concomitant]
     Active Substance: AMITRIPTYLINE
  51. VALIUM [Concomitant]
     Active Substance: DIAZEPAM
  52. TIZANIDINE (TIZANIDINE) [Concomitant]
     Active Substance: TIZANIDINE
  53. MELATONIN [Concomitant]
     Active Substance: MELATONIN

REACTIONS (2)
  - Infection [Not Recovered/Not Resolved]
  - Respiratory disorder [Unknown]
